FAERS Safety Report 7642877-2 (Version None)
Quarter: 2011Q3

REPORT INFORMATION
  Report Type: 
  Country: None (occurrence: None)
  Receive Date: 20110728
  Receipt Date: 20110715
  Transmission Date: 20111222
  Serious: Yes (Other)
  Sender: FDA-Public Use
  Company Number: PHEH2007US09509

PATIENT
  Sex: Female
  Weight: 41.27 kg

DRUGS (24)
  1. ZOMETA [Suspect]
  2. FOSAMAX [Suspect]
     Indication: OSTEOPENIA
     Dosage: 10 MG, QD
     Dates: start: 19960101, end: 19990101
  3. DURAGESIC-100 [Concomitant]
     Dosage: 50 UG, Q72H
  4. FIORICET [Concomitant]
     Indication: PAIN
     Route: 048
  5. COZAAR [Concomitant]
     Dosage: 50 MG, UNK
  6. CLONAZEPAM [Concomitant]
     Dosage: 2 MG, TID PRN
  7. PROCRIT                            /00909301/ [Concomitant]
  8. AREDIA [Suspect]
     Indication: BREAST CANCER
  9. FLEXERIL [Concomitant]
     Dosage: 10 MG, PRN
  10. RELAFEN [Concomitant]
  11. AREDIA [Suspect]
     Indication: OSTEOPOROSIS
     Dosage: 90 MG, QMO
     Route: 042
     Dates: start: 19991001, end: 20030801
  12. FERROUS SULFATE TAB [Concomitant]
     Dosage: 325 MG, 1-2 TIMES DAILY
  13. METHADONE HYDROCHLORIDE [Concomitant]
  14. ZANAFLEX [Concomitant]
     Dosage: 2 - 4 MG, PRN
  15. LEVOXYL [Concomitant]
     Dosage: 0.025 MG, QD
     Route: 048
  16. PROVENTIL [Concomitant]
     Indication: DYSPNOEA
  17. EPIPEN [Concomitant]
     Indication: ARTHROPOD STING
     Dosage: 0.3 MG, PRN
  18. CENTRUM [Concomitant]
  19. ZOCOR [Concomitant]
     Indication: BLOOD CHOLESTEROL INCREASED
     Dosage: 40 MG, QD
  20. FLU ^LEDERLE^ [Concomitant]
     Dosage: 0.5 ML, UNK
     Route: 030
  21. SYNTHROID [Concomitant]
     Dosage: 0.075 MG, UNK
  22. EPOGEN [Concomitant]
     Route: 058
  23. CALCIUM W/VITAMIN D NOS [Concomitant]
  24. TYLENOL-500 [Concomitant]

REACTIONS (43)
  - PAIN [None]
  - STOMATITIS [None]
  - BONE SCAN ABNORMAL [None]
  - NECK PAIN [None]
  - COLONIC POLYP [None]
  - HAEMATURIA [None]
  - URINARY TRACT INFECTION [None]
  - BONE LOSS [None]
  - ANXIETY [None]
  - DENTAL FISTULA [None]
  - OROPHARYNGEAL PAIN [None]
  - BONE DISORDER [None]
  - RECTAL HAEMORRHAGE [None]
  - EXOSTOSIS [None]
  - VITAMIN D DEFICIENCY [None]
  - VISUAL IMPAIRMENT [None]
  - DYSPHAGIA [None]
  - PERIODONTITIS [None]
  - SINUS DISORDER [None]
  - HAEMATOCHEZIA [None]
  - BACK PAIN [None]
  - NIGHT SWEATS [None]
  - MOUTH ULCERATION [None]
  - SPINAL HAEMANGIOMA [None]
  - OROPHARYNGEAL PLAQUE [None]
  - HAEMOGLOBIN DECREASED [None]
  - DENTAL CARIES [None]
  - DERMATITIS ALLERGIC [None]
  - SCIATICA [None]
  - HAEMORRHOIDS [None]
  - POLLAKIURIA [None]
  - OSTEONECROSIS OF JAW [None]
  - HEADACHE [None]
  - DYSPHONIA [None]
  - OSTEOMYELITIS [None]
  - CALCIUM IONISED INCREASED [None]
  - SPINAL DISORDER [None]
  - HYPOAESTHESIA [None]
  - CHEST PAIN [None]
  - X-RAY DENTAL [None]
  - TOOTH EROSION [None]
  - BLOOD CALCIUM INCREASED [None]
  - NEURITIS [None]
